FAERS Safety Report 26035567 (Version 1)
Quarter: 2025Q4

REPORT INFORMATION
  Report Type: Report from Study
  Country: IL (occurrence: IL)
  Receive Date: 20251112
  Receipt Date: 20251112
  Transmission Date: 20260117
  Serious: Yes (Hospitalization)
  Sender: EMD SERONO INC
  Company Number: IL-Merck Healthcare KGaA-2025056893

PATIENT
  Sex: Female

DRUGS (1)
  1. MAVENCLAD [Suspect]
     Active Substance: CLADRIBINE
     Indication: Multiple sclerosis

REACTIONS (3)
  - Low birth weight baby [Recovered/Resolved]
  - Bradycardia neonatal [Recovered/Resolved]
  - Cyanosis neonatal [Recovered/Resolved]
